FAERS Safety Report 6198090-1 (Version None)
Quarter: 2009Q2

REPORT INFORMATION
  Report Type: 
  Country: None (occurrence: None)
  Receive Date: 20090521
  Receipt Date: 20090515
  Transmission Date: 20091009
  Serious: Yes (Other)
  Sender: FDA-Public Use
  Company Number: US-ABBOTT-09P-163-0574422-00

PATIENT
  Age: 16 Year

DRUGS (6)
  1. CYCLOSPORINE [Suspect]
     Indication: LYMPHOHISTIOCYTOSIS
     Dosage: NOT REPORTED
  2. CYCLOSPORINE [Suspect]
     Indication: HISTIOCYTOSIS HAEMATOPHAGIC
  3. DEXAMETHASONE 4MG TAB [Concomitant]
     Indication: LYMPHOHISTIOCYTOSIS
     Dosage: NOT REPORTED
  4. DEXAMETHASONE 4MG TAB [Concomitant]
     Indication: HISTIOCYTOSIS HAEMATOPHAGIC
  5. ETOPOSIDE [Concomitant]
     Indication: HISTIOCYTOSIS HAEMATOPHAGIC
     Dosage: NOT REPORTED
  6. ETOPOSIDE [Concomitant]
     Indication: LYMPHOHISTIOCYTOSIS

REACTIONS (1)
  - NEUROTOXICITY [None]
